FAERS Safety Report 15934640 (Version 1)
Quarter: 2019Q1

REPORT INFORMATION
  Report Type: Report from Study
  Country: US (occurrence: US)
  Receive Date: 20190207
  Receipt Date: 20190207
  Transmission Date: 20190417
  Serious: Yes (Hospitalization)
  Sender: FDA-Public Use
  Company Number: PHHO2019US001480

PATIENT
  Age: 58 Year
  Sex: Female
  Weight: 68.1 kg

DRUGS (6)
  1. CYCLOPHOSPHAMIDE. [Concomitant]
     Active Substance: CYCLOPHOSPHAMIDE
     Indication: LEUKAPHERESIS
     Dosage: 420 MG, UNK
     Route: 065
     Dates: start: 20181110, end: 20181112
  2. KYMRIAH [Suspect]
     Active Substance: TISAGENLECLEUCEL
     Indication: DIFFUSE LARGE B-CELL LYMPHOMA
     Dosage: 1.1X10^6 CELLS
     Route: 042
     Dates: start: 20181115, end: 20181115
  3. FLUDARABINE [Concomitant]
     Active Substance: FLUDARABINE PHOSPHATE
     Indication: LEUKAPHERESIS
     Dosage: 42 MG, UNK
     Route: 065
     Dates: start: 20181110, end: 20181112
  4. CLONIDINE. [Concomitant]
     Active Substance: CLONIDINE
     Indication: ANXIETY
     Dosage: 0.3 MG, PRN
     Route: 048
     Dates: start: 2010
  5. AMLODIPINE BESYLATE. [Concomitant]
     Active Substance: AMLODIPINE BESYLATE
     Indication: HYPERTENSION
     Dosage: 10 MG, QD
     Route: 048
     Dates: start: 2006
  6. LISINOPRIL. [Concomitant]
     Active Substance: LISINOPRIL
     Indication: HYPERTENSION
     Dosage: 40 MG, QD
     Route: 048
     Dates: start: 2006

REACTIONS (4)
  - Pyrexia [Recovered/Resolved]
  - Muscular weakness [Recovering/Resolving]
  - Arthralgia [Unknown]
  - Bone pain [Unknown]

NARRATIVE: CASE EVENT DATE: 201812
